FAERS Safety Report 9015307 (Version 1)
Quarter: 2013Q1

REPORT INFORMATION
  Report Type: Spontaneous
  Country: US (occurrence: US)
  Receive Date: 20130116
  Receipt Date: 20130116
  Transmission Date: 20140127
  Serious: Yes (Hospitalization)
  Sender: FDA-Public Use
  Company Number: US-009507513-1301XAA004113

PATIENT
  Age: 10 Year
  Sex: Male

DRUGS (4)
  1. SINGULAIR [Suspect]
     Indication: BRONCHIAL HYPERREACTIVITY
     Dosage: UNK
     Route: 048
  2. ERYTHROCIN [Suspect]
     Indication: PERTUSSIS
     Dosage: UNK
  3. VENTOLIN (ALBUTEROL) [Suspect]
     Indication: PERTUSSIS
     Dosage: UNK
  4. VENTOLIN (ALBUTEROL) [Suspect]
     Indication: BRONCHIAL HYPERREACTIVITY

REACTIONS (6)
  - Ocular icterus [Unknown]
  - Jaundice [Unknown]
  - General physical health deterioration [Unknown]
  - Chromaturia [Unknown]
  - Hepatitis cholestatic [Unknown]
  - Vomiting [Unknown]
